FAERS Safety Report 7920873-5 (Version None)
Quarter: 2011Q4

REPORT INFORMATION
  Report Type: 
  Country: None (occurrence: None)
  Receive Date: 20111117
  Receipt Date: 20110908
  Transmission Date: 20120403
  Serious: No
  Sender: FDA-Public Use
  Company Number: US-GLAXOSMITHKLINE-A0943907A

PATIENT
  Sex: Male

DRUGS (3)
  1. STARLIX [Concomitant]
  2. BLOOD PRESSURE MEDICATION [Concomitant]
  3. VOTRIENT [Suspect]
     Indication: LUNG NEOPLASM MALIGNANT
     Dosage: 200MG THREE TIMES PER DAY
     Route: 048
     Dates: start: 20110601

REACTIONS (1)
  - SKIN DEPIGMENTATION [None]
